FAERS Safety Report 4830678-X (Version None)
Quarter: 2005Q4

REPORT INFORMATION
  Report Type: 
  Country: None (occurrence: None)
  Receive Date: 20051114
  Receipt Date: 20051107
  Transmission Date: 20060501
  Serious: Yes (Life-Threatening, Hospitalization, Disabling, Other)
  Sender: FDA-Public Use
  Company Number: HQWYE315931OCT05

PATIENT
  Age: 26 Year
  Sex: Male

DRUGS (6)
  1. RAPAMUNE [Suspect]
     Indication: PROPHYLAXIS AGAINST TRANSPLANT REJECTION
     Dosage: 9 MG 1X PER 1 DAY, ORAL
     Route: 048
     Dates: start: 20050809, end: 20051031
  2. PREDNISONE [Concomitant]
  3. CELLCEPT [Suspect]
  4. NYSTATIN [Concomitant]
  5. OEMPRAZPLE (OMEPRAZOLE) [Concomitant]
  6. VALCYTE [Concomitant]

REACTIONS (4)
  - BLOOD CREATINE INCREASED [None]
  - BLOOD UREA INCREASED [None]
  - GRAFT COMPLICATION [None]
  - PAIN [None]
